FAERS Safety Report 15407385 (Version 2)
Quarter: 2018Q4

REPORT INFORMATION
  Report Type: Spontaneous
  Country: US (occurrence: US)
  Receive Date: 20180920
  Receipt Date: 20181220
  Transmission Date: 20190204
  Serious: Yes (Hospitalization)
  Sender: FDA-Public Use
  Company Number: US-DSJP-DSU-2017-149163

PATIENT

DRUGS (4)
  1. BENICAR [Suspect]
     Active Substance: OLMESARTAN MEDOXOMIL
     Indication: PRODUCT USED FOR UNKNOWN INDICATION
     Dosage: 40 MG, QD
     Route: 048
     Dates: start: 20070219, end: 20150217
  2. AZOR [Suspect]
     Active Substance: AMLODIPINE BESYLATE\OLMESARTAN MEDOXOMIL
     Dosage: 10-40 MG, QD
     Route: 048
  3. BENICAR HCT [Suspect]
     Active Substance: HYDROCHLOROTHIAZIDE\OLMESARTAN MEDOXOMIL
     Indication: PRODUCT USED FOR UNKNOWN INDICATION
     Dosage: 40-25 MG, QD
     Route: 048
     Dates: start: 20070219, end: 20150217
  4. AZOR [Suspect]
     Active Substance: AMLODIPINE BESYLATE\OLMESARTAN MEDOXOMIL
     Indication: HYPERTENSION
     Dosage: 5-40 MG, QD
     Route: 048

REACTIONS (4)
  - Gastric ulcer helicobacter [Not Recovered/Not Resolved]
  - Large intestine polyp [Recovered/Resolved]
  - Sprue-like enteropathy [Recovering/Resolving]
  - Diverticulum intestinal [Unknown]

NARRATIVE: CASE EVENT DATE: 201310
